FAERS Safety Report 4325027-X (Version None)
Quarter: 2004Q1

REPORT INFORMATION
  Report Type: 
  Country: None (occurrence: None)
  Receive Date: 20040326
  Receipt Date: 20040326
  Transmission Date: 20041129
  Serious: Yes (Hospitalization)
  Sender: FDA-Public Use
  Company Number: FR-ROCHE-362724

PATIENT
  Age: 68 Year
  Sex: Female

DRUGS (6)
  1. LOXEN [Suspect]
     Indication: HYPERTENSION
     Route: 042
     Dates: start: 20040109, end: 20040118
  2. RISORDAN [Interacting]
     Route: 041
     Dates: end: 20040118
  3. PRAZOSIN HCL [Interacting]
     Indication: HYPERTENSION
     Route: 048
     Dates: end: 20040117
  4. FUROSEMIDE [Interacting]
     Route: 042
     Dates: end: 20040117
  5. HYPERIUM [Interacting]
     Indication: HYPERTENSION
     Route: 048
  6. AMLOR [Interacting]
     Indication: HYPERTENSION
     Route: 048
     Dates: end: 20040117

REACTIONS (11)
  - BLOOD PRESSURE DECREASED [None]
  - CARDIAC FAILURE [None]
  - DIALYSIS [None]
  - DRUG INTERACTION [None]
  - HYPERKALAEMIA [None]
  - HYPERTENSION [None]
  - LOWER RESPIRATORY TRACT INFECTION [None]
  - OLIGURIA [None]
  - RENAL FAILURE [None]
  - SUPERINFECTION [None]
  - TREATMENT NONCOMPLIANCE [None]
